FAERS Safety Report 10262268 (Version 1)
Quarter: 2014Q2

REPORT INFORMATION
  Report Type: Spontaneous
  Country: US (occurrence: US)
  Receive Date: 20140626
  Receipt Date: 20140626
  Transmission Date: 20141212
  Serious: Yes (Hospitalization)
  Sender: FDA-Public Use
  Company Number: US-PFIZER INC-2014170955

PATIENT
  Age: 60 Year
  Sex: Male

DRUGS (1)
  1. INLYTA [Suspect]
     Indication: RENAL CANCER
     Dosage: 5 MG, EVERY 12 HOURS
     Route: 048
     Dates: start: 20140523, end: 20140530

REACTIONS (2)
  - Blood pressure decreased [Recovering/Resolving]
  - Heart rate decreased [Recovering/Resolving]
